FAERS Safety Report 9727128 (Version 2)
Quarter: 2013Q4

REPORT INFORMATION
  Report Type: Spontaneous
  Country: IN (occurrence: IN)
  Receive Date: 20131203
  Receipt Date: 20131226
  Transmission Date: 20140711
  Serious: Yes (Hospitalization, Disabling, Other)
  Sender: FDA-Public Use
  Company Number: PHHY2013IN139730

PATIENT
  Age: 83 Year
  Sex: Female
  Weight: 50 kg

DRUGS (2)
  1. CO-DIOVAN [Suspect]
     Indication: HYPERTENSION
     Dosage: 1 DF (VALS 160 MG / HCT UKN), DAILY
     Route: 048
     Dates: start: 20131122, end: 20131129
  2. ANTIBIOTICS [Concomitant]
     Dosage: UNK UKN, UNK
     Route: 042

REACTIONS (13)
  - Coma [Recovering/Resolving]
  - Haemorrhage [Recovering/Resolving]
  - Balance disorder [Recovering/Resolving]
  - Tremor [Recovering/Resolving]
  - Psychomotor hyperactivity [Recovering/Resolving]
  - Abnormal behaviour [Recovering/Resolving]
  - Feeling abnormal [Recovering/Resolving]
  - Limb discomfort [Recovering/Resolving]
  - Speech disorder [Recovering/Resolving]
  - Facial pain [Recovering/Resolving]
  - Electrolyte imbalance [Recovering/Resolving]
  - Blood glucose decreased [Recovering/Resolving]
  - Blood pressure decreased [Recovering/Resolving]
